FAERS Safety Report 9983110 (Version 1)
Quarter: 2014Q1

REPORT INFORMATION
  Report Type: Report from Study
  Country: US (occurrence: US)
  Receive Date: 20140307
  Receipt Date: 20140307
  Transmission Date: 20141002
  Serious: No
  Sender: FDA-Public Use
  Company Number: US-ABBVIE-13P-163-1177775-00

PATIENT
  Age: 60 Year
  Sex: Female

DRUGS (6)
  1. HUMIRA [Suspect]
     Indication: CROHN^S DISEASE
     Dates: start: 20131205
  2. HUMIRA [Suspect]
     Indication: CROHN^S DISEASE
     Dates: start: 20131107, end: 20131107
  3. HUMIRA [Suspect]
     Dates: start: 20131121, end: 20131121
  4. MULTIVITAMIN [Concomitant]
     Indication: PRODUCT USED FOR UNKNOWN INDICATION
  5. CALCIUM MAGNESIUM + ZINC [Concomitant]
     Indication: PRODUCT USED FOR UNKNOWN INDICATION
  6. FISH OIL [Concomitant]
     Indication: PRODUCT USED FOR UNKNOWN INDICATION

REACTIONS (15)
  - Fatigue [Not Recovered/Not Resolved]
  - Fatigue [Unknown]
  - Injection site warmth [Recovered/Resolved]
  - Injection site warmth [Recovering/Resolving]
  - Contusion [Recovering/Resolving]
  - Injection site papule [Recovered/Resolved]
  - Muscular weakness [Unknown]
  - Injection site erythema [Recovered/Resolved]
  - Injection site pruritus [Recovered/Resolved]
  - Crohn^s disease [Unknown]
  - Pelvic pain [Unknown]
  - Nausea [Unknown]
  - Injection site erythema [Recovering/Resolving]
  - Injection site pruritus [Unknown]
  - Injection site reaction [Unknown]
